FAERS Safety Report 5501866-4 (Version None)
Quarter: 2007Q4

REPORT INFORMATION
  Report Type: 
  Country: None (occurrence: None)
  Receive Date: 20071030
  Receipt Date: 20070622
  Transmission Date: 20080405
  Serious: No
  Sender: FDA-Public Use
  Company Number: A0659706A

PATIENT
  Age: 75 Year
  Sex: Female

DRUGS (3)
  1. SEREVENT [Suspect]
     Indication: CHRONIC OBSTRUCTIVE PULMONARY DISEASE
     Dosage: 50MCG TWICE PER DAY
     Route: 055
     Dates: start: 20070507
  2. SPIRIVA [Concomitant]
  3. TRIAMTEREN + HYDROCHLOROTHIAZIDE [Concomitant]

REACTIONS (1)
  - JOINT SWELLING [None]
